FAERS Safety Report 12504145 (Version 1)
Quarter: 2016Q2

REPORT INFORMATION
  Report Type: Spontaneous
  Country: JP (occurrence: JP)
  Receive Date: 20160628
  Receipt Date: 20160628
  Transmission Date: 20160815
  Serious: Yes (Other)
  Sender: FDA-Public Use
  Company Number: JP-PFIZER INC-2016312750

PATIENT
  Age: 65 Year
  Sex: Male
  Weight: 49.1 kg

DRUGS (3)
  1. METHYLPREDNISOLONE. [Suspect]
     Active Substance: METHYLPREDNISOLONE
     Indication: GRANULOMATOSIS WITH POLYANGIITIS
     Dosage: 1 G, DAILY
     Dates: start: 2012, end: 2012
  2. PREDNISOLONE. [Suspect]
     Active Substance: PREDNISOLONE
     Indication: GRANULOMATOSIS WITH POLYANGIITIS
     Dosage: 50 MG, DAILY
     Dates: start: 2012
  3. PREDNISOLONE. [Suspect]
     Active Substance: PREDNISOLONE
     Dosage: 40 MG, DAILY

REACTIONS (2)
  - Aspergillus infection [Recovered/Resolved]
  - Tracheobronchitis [Recovered/Resolved]
